FAERS Safety Report 23900461 (Version 1)
Quarter: 2024Q2

REPORT INFORMATION
  Report Type: Spontaneous
  Country: US (occurrence: None)
  Receive Date: 20240526
  Receipt Date: 20240526
  Transmission Date: 20240715
  Serious: No
  Sender: FDA-Public Use
  Company Number: US-ROCHE-3432750

PATIENT
  Age: 56 Year
  Sex: Female
  Weight: 104.42 kg

DRUGS (3)
  1. OCREVUS [Suspect]
     Active Substance: OCRELIZUMAB
     Indication: Relapsing-remitting multiple sclerosis
     Dosage: NO
     Route: 042
     Dates: start: 202110, end: 2021
  2. OCREVUS [Suspect]
     Active Substance: OCRELIZUMAB
     Dosage: YES
     Route: 042
     Dates: start: 2022
  3. DALFAMPRIDINE [Concomitant]
     Active Substance: DALFAMPRIDINE

REACTIONS (2)
  - Off label use [Unknown]
  - Fall [Unknown]

NARRATIVE: CASE EVENT DATE: 20211001
